FAERS Safety Report 20841740 (Version 2)
Quarter: 2022Q2

REPORT INFORMATION
  Report Type: Report from Study
  Country: CA (occurrence: CA)
  Receive Date: 20220518
  Receipt Date: 20220524
  Transmission Date: 20220720
  Serious: Yes (Hospitalization)
  Sender: FDA-Public Use
  Company Number: CA-JNJFOC-20220521732

PATIENT
  Age: 9 Year
  Sex: Male
  Weight: 40 kg

DRUGS (2)
  1. REMICADE [Suspect]
     Active Substance: INFLIXIMAB
     Indication: Crohn^s disease
     Dosage: REMICADE DOSE WAS GIVEN 1 WEEK (06-MAY-2022) POST INITIAL REMICADE TREATMENT START (INDUCTION WEEKS
     Route: 042
     Dates: start: 20220428
  2. REMICADE [Suspect]
     Active Substance: INFLIXIMAB
     Dosage: WEEKS 0-2-6 + Q8 WEEKS. PATIENT TO HAVE INDUCTION DOSE(300MG) AT WEEK 5
     Route: 042

REACTIONS (4)
  - Crohn^s disease [Not Recovered/Not Resolved]
  - Weight increased [Unknown]
  - Off label use [Unknown]
  - Product use issue [Unknown]

NARRATIVE: CASE EVENT DATE: 20220101
